FAERS Safety Report 25136709 (Version 1)
Quarter: 2025Q1

REPORT INFORMATION
  Report Type: Spontaneous
  Country: US (occurrence: US)
  Receive Date: 20250328
  Receipt Date: 20250328
  Transmission Date: 20250408
  Serious: Yes (Hospitalization, Other)
  Sender: TAKEDA
  Company Number: US-TAKEDA-2025TUS028858

PATIENT
  Sex: Female

DRUGS (16)
  1. CUVITRU [Suspect]
     Active Substance: HUMAN IMMUNOGLOBULIN G
     Indication: Hypogammaglobulinaemia
     Dosage: 12 GRAM, 1/WEEK
  2. ELIQUIS [Suspect]
     Active Substance: APIXABAN
     Indication: Product used for unknown indication
  3. METOPROLOL [Concomitant]
     Active Substance: METOPROLOL
  4. LANTUS [Concomitant]
     Active Substance: INSULIN GLARGINE
  5. PRECEDEX [Concomitant]
     Active Substance: DEXMEDETOMIDINE HYDROCHLORIDE
  6. ZYRTEC [Concomitant]
     Active Substance: CETIRIZINE HYDROCHLORIDE
  7. KEPPRA [Concomitant]
     Active Substance: LEVETIRACETAM
  8. SOLU-MEDROL [Concomitant]
     Active Substance: METHYLPREDNISOLONE SODIUM SUCCINATE
  9. INSULIN NOS [Concomitant]
     Active Substance: INSULIN NOS
  10. AMIODARONE [Concomitant]
     Active Substance: AMIODARONE
  11. VITAMIN D [Concomitant]
     Active Substance: VITAMIN D NOS
  12. MUCINEX [Concomitant]
     Active Substance: GUAIFENESIN
  13. SYNTHROID [Concomitant]
     Active Substance: LEVOTHYROXINE SODIUM
  14. ALDACTONE [Concomitant]
     Active Substance: SPIRONOLACTONE
  15. MAGNESIUM [Concomitant]
     Active Substance: MAGNESIUM
  16. NYSTATIN [Concomitant]
     Active Substance: NYSTATIN

REACTIONS (5)
  - Pneumonia [Unknown]
  - COVID-19 [Unknown]
  - Haemorrhage [Unknown]
  - Influenza [Unknown]
  - Product use issue [Unknown]
